FAERS Safety Report 5647221-8 (Version None)
Quarter: 2008Q1

REPORT INFORMATION
  Report Type: 
  Country: None (occurrence: None)
  Receive Date: 20080303
  Receipt Date: 20080221
  Transmission Date: 20080703
  Serious: Yes (Death, Hospitalization)
  Sender: FDA-Public Use
  Company Number: IT-ROCHE-548865

PATIENT
  Age: 79 Year
  Sex: Female

DRUGS (3)
  1. CAPECITABINE [Suspect]
     Indication: BREAST CANCER STAGE IV
     Route: 048
     Dates: start: 20080122, end: 20080203
  2. HERCEPTIN [Concomitant]
     Dosage: FORMULATION REPORTED AS VIAL.
  3. UNSPECIFIED DRUG [Concomitant]
     Dosage: REPORTED AS UNSPECIFIED NSAIDS/UNKNOWN TRADE NAME.

REACTIONS (4)
  - DEHYDRATION [None]
  - DIABETES MELLITUS INADEQUATE CONTROL [None]
  - DIARRHOEA [None]
  - MUCOSAL INFLAMMATION [None]
